FAERS Safety Report 5824531-2 (Version None)
Quarter: 2008Q3

REPORT INFORMATION
  Report Type: 
  Country: None (occurrence: None)
  Receive Date: 20080728
  Receipt Date: 20080721
  Transmission Date: 20090109
  Serious: Yes (Other)
  Sender: FDA-Public Use
  Company Number: DE-JNJFOC-20080705623

PATIENT
  Age: 8 Year
  Sex: Female

DRUGS (2)
  1. DOLORMIN FUR KINDER 2% [Suspect]
     Route: 048
  2. DOLORMIN FUR KINDER 2% [Suspect]
     Indication: DRUG USE FOR UNKNOWN INDICATION
     Route: 048

REACTIONS (4)
  - AMNESIA [None]
  - DEPRESSED LEVEL OF CONSCIOUSNESS [None]
  - HALLUCINATION [None]
  - MIDDLE INSOMNIA [None]
